FAERS Safety Report 18807724 (Version 1)
Quarter: 2021Q1

REPORT INFORMATION
  Report Type: Spontaneous
  Country: US (occurrence: US)
  Receive Date: 20210129
  Receipt Date: 20210129
  Transmission Date: 20210419
  Serious: Yes (Hospitalization)
  Sender: FDA-Public Use
  Company Number: None

PATIENT
  Age: 87 Year
  Sex: Female
  Weight: 58.5 kg

DRUGS (1)
  1. BAMLANIVIMAB. [Suspect]
     Active Substance: BAMLANIVIMAB
     Indication: COVID-19
     Dosage: ?          OTHER FREQUENCY:ONCE;?
     Route: 040
     Dates: start: 20210116, end: 20210116

REACTIONS (10)
  - Haemoglobin decreased [None]
  - Facial paralysis [None]
  - Anxiety [None]
  - Haematocrit decreased [None]
  - Muscular weakness [None]
  - Carotid arteriosclerosis [None]
  - Carotid artery stenosis [None]
  - Blood potassium decreased [None]
  - Dysarthria [None]
  - Blood sodium decreased [None]

NARRATIVE: CASE EVENT DATE: 20210117
